FAERS Safety Report 13203510 (Version 1)
Quarter: 2017Q1

REPORT INFORMATION
  Report Type: Spontaneous
  Country: SE (occurrence: SE)
  Receive Date: 20170209
  Receipt Date: 20170209
  Transmission Date: 20170428
  Serious: Yes (Hospitalization)
  Sender: FDA-Public Use
  Company Number: SE-TEVA-736873ACC

PATIENT
  Age: 84 Year
  Sex: Female

DRUGS (3)
  1. ENALAPRIL ACTAVIS [Suspect]
     Active Substance: ENALAPRIL
     Indication: HYPERTENSION
     Dosage: 10 MILLIGRAM DAILY;
     Route: 048
     Dates: end: 20141215
  2. FELODIPINE. [Concomitant]
     Active Substance: FELODIPINE
  3. VAGIFEM [Concomitant]
     Active Substance: ESTRADIOL

REACTIONS (5)
  - Fall [Unknown]
  - Hypotension [Recovered/Resolved]
  - Head injury [Unknown]
  - Syncope [Unknown]
  - Vomiting [Unknown]

NARRATIVE: CASE EVENT DATE: 20141212
